FAERS Safety Report 4843426-4 (Version None)
Quarter: 2005Q4

REPORT INFORMATION
  Report Type: 
  Country: None (occurrence: None)
  Receive Date: 20051201
  Receipt Date: 20051124
  Transmission Date: 20060501
  Serious: Yes (Other)
  Sender: FDA-Public Use
  Company Number: GB-MERCK-0511GBR00142

PATIENT
  Age: 76 Year
  Sex: Female
  Weight: 86 kg

DRUGS (7)
  1. ZETIA [Suspect]
     Indication: HYPERCHOLESTEROLAEMIA
     Route: 048
     Dates: start: 20050831, end: 20051108
  2. ASPIRIN [Concomitant]
     Route: 065
     Dates: start: 19990514
  3. DILTIAZEM HYDROCHLORIDE [Concomitant]
     Route: 065
     Dates: start: 20020304
  4. RANITIDINE [Concomitant]
     Route: 065
     Dates: start: 20031201
  5. BENDROFLUMETHIAZIDE [Concomitant]
     Route: 065
     Dates: start: 20031023
  6. ACETAMINOPHEN AND CODEINE PHOSPHATE [Concomitant]
     Route: 065
     Dates: start: 20050715
  7. CALCIUM (UNSPECIFIED) AND VITAMIN D (UNSPECIFIED) [Concomitant]
     Route: 065
     Dates: start: 20050429

REACTIONS (1)
  - LIVER FUNCTION TEST ABNORMAL [None]
